FAERS Safety Report 23588560 (Version 1)
Quarter: 2024Q1

REPORT INFORMATION
  Report Type: Spontaneous
  Country: CA (occurrence: CA)
  Receive Date: 20240302
  Receipt Date: 20240302
  Transmission Date: 20240410
  Serious: Yes (Other)
  Sender: FDA-Public Use
  Company Number: None

PATIENT
  Age: 35 Year
  Sex: Female

DRUGS (10)
  1. METHOTREXATE [Suspect]
     Active Substance: METHOTREXATE
     Indication: Cheilitis
     Route: 065
  2. CRISABOROLE [Suspect]
     Active Substance: CRISABOROLE
     Indication: Cheilitis
     Route: 065
  3. DAPSONE [Suspect]
     Active Substance: DAPSONE
     Indication: Cheilitis
     Route: 065
  4. DUPILUMAB [Suspect]
     Active Substance: DUPILUMAB
     Indication: Cheilitis
     Dosage: 1 EVERY 4 WEEKS
     Route: 065
  5. ISOTRETINOIN [Suspect]
     Active Substance: ISOTRETINOIN
     Indication: Cheilitis
     Dosage: 1 EVERY 1 DAYS
     Route: 065
  6. PARAFFIN [Concomitant]
     Active Substance: PARAFFIN
     Indication: Cheilitis
     Route: 065
  7. VALACYCLOVIR HYDROCHLORIDE [Concomitant]
     Active Substance: VALACYCLOVIR HYDROCHLORIDE
     Indication: Prophylaxis
     Dosage: 2 EVERY 1 DAYS
     Route: 065
  8. HYDROCORTISONE VALERATE [Concomitant]
     Active Substance: HYDROCORTISONE VALERATE
     Indication: Cheilitis
     Route: 065
  9. TACROLIMUS [Concomitant]
     Active Substance: TACROLIMUS
     Indication: Prophylaxis
     Route: 065
  10. DUPILUMAB [Suspect]
     Active Substance: DUPILUMAB
     Indication: Cheilitis
     Route: 065

REACTIONS (5)
  - Cheilitis [Recovered/Resolved]
  - Dermatitis [Recovered/Resolved]
  - Eyelid irritation [Recovered/Resolved]
  - Off label use [Unknown]
  - Therapeutic product ineffective [Recovered/Resolved]
